FAERS Safety Report 6501354-2 (Version None)
Quarter: 2009Q4

REPORT INFORMATION
  Report Type: 
  Country: None (occurrence: None)
  Receive Date: 20091216
  Receipt Date: 20091207
  Transmission Date: 20100525
  Serious: Yes (Other)
  Sender: FDA-Public Use
  Company Number: JP-JNJFOC-20091203082

PATIENT
  Sex: Female
  Weight: 51 kg

DRUGS (19)
  1. DOXORUBICIN HCL [Suspect]
     Indication: MALIGNANT PERITONEAL NEOPLASM
     Dosage: CYCLE 2
     Route: 042
     Dates: start: 20090717, end: 20090814
  2. DOXORUBICIN HCL [Suspect]
     Dosage: CYCLE 1
     Route: 042
     Dates: start: 20090717, end: 20090814
  3. MYSLEE [Concomitant]
     Indication: PROPHYLAXIS
     Route: 048
  4. HEAVY MAGNESIUM OXIDE [Concomitant]
     Indication: PROPHYLAXIS
     Route: 048
  5. ZOFRAN [Concomitant]
     Indication: PROPHYLAXIS
     Route: 048
  6. ADEROXAL [Concomitant]
     Indication: PROPHYLAXIS
     Route: 048
  7. HEPARIN [Concomitant]
     Indication: PROPHYLAXIS
     Route: 061
  8. AZUNOL [Concomitant]
     Indication: PROPHYLAXIS
     Route: 002
  9. DECADRON [Concomitant]
     Indication: PROPHYLAXIS
     Route: 042
     Dates: start: 20090803, end: 20090909
  10. NAIXAN [Concomitant]
     Indication: PROPHYLAXIS
     Route: 048
  11. GASMOTIN [Concomitant]
     Route: 048
  12. SUCRALFATE [Concomitant]
     Route: 048
  13. TAKEPRON [Concomitant]
     Route: 048
  14. FESIN [Concomitant]
     Route: 042
  15. LASIX [Concomitant]
     Route: 042
  16. ZANTAC [Concomitant]
     Route: 042
  17. SODIUM CHLORIDE [Concomitant]
     Route: 042
  18. POTASSIUM CHLORIDE [Concomitant]
     Route: 042
  19. PRIMPERAN TAB [Concomitant]
     Route: 042

REACTIONS (1)
  - LUNG DISORDER [None]
